FAERS Safety Report 6464580-7 (Version None)
Quarter: 2009Q4

REPORT INFORMATION
  Report Type: 
  Country: None (occurrence: None)
  Receive Date: 20091201
  Receipt Date: 20091120
  Transmission Date: 20100525
  Serious: Yes (Other)
  Sender: FDA-Public Use
  Company Number: GB-PFIZER INC-2009300521

PATIENT
  Age: 64 Year
  Sex: Female
  Weight: 72.5 kg

DRUGS (7)
  1. CHAMPIX [Suspect]
     Indication: SMOKING CESSATION THERAPY
     Dosage: UNK
     Route: 048
     Dates: start: 20091008, end: 20091027
  2. CALCIUM CARBONATE/COLECALCIFEROL [Concomitant]
     Dosage: UNK
     Dates: start: 20050309
  3. DICLOFENAC SODIUM [Concomitant]
     Dosage: UNK
     Dates: start: 20030519
  4. DIPROBASE, UNSPECIFIED [Concomitant]
     Dosage: UNK
     Dates: start: 20060913
  5. EVOREL CONTI [Concomitant]
     Dosage: UNK
     Dates: start: 20081016
  6. GLUCOSAMINE SULFATE [Concomitant]
     Dosage: 1 DF, 1X/DAY
     Dates: start: 20080424
  7. MOMETASONE FUROATE [Concomitant]
     Dosage: UNK
     Dates: start: 20060412

REACTIONS (4)
  - AGITATION [None]
  - AKATHISIA [None]
  - DEPRESSED MOOD [None]
  - INSOMNIA [None]
